FAERS Safety Report 15711662 (Version 1)
Quarter: 2018Q4

REPORT INFORMATION
  Report Type: Spontaneous
  Country: GB (occurrence: GB)
  Receive Date: 20181212
  Receipt Date: 20181212
  Transmission Date: 20190205
  Serious: Yes (Other)
  Sender: FDA-Public Use
  Company Number: GB-TEVA-2018-GB-984953

PATIENT
  Age: 83 Year
  Sex: Female
  Weight: 62 kg

DRUGS (7)
  1. RANITIDINE. [Concomitant]
     Active Substance: RANITIDINE
     Dosage: 2 DOSAGE FORMS DAILY;
     Route: 065
     Dates: start: 20180405
  2. PROPRANOLOL [Concomitant]
     Active Substance: PROPRANOLOL HYDROCHLORIDE
     Dosage: 1-2 TWICE DAILY, TRY TO REDUCE DOSE SLOWLY
     Route: 065
     Dates: start: 20180405
  3. ADCAL [Concomitant]
     Active Substance: CALCIUM CARBONATE
     Dosage: 2 DOSAGE FORMS DAILY;
     Route: 065
     Dates: start: 20180823
  4. NITROFURANTOIN. [Suspect]
     Active Substance: NITROFURANTOIN
     Dosage: 2 DOSAGE FORMS DAILY;
     Route: 065
     Dates: start: 20181029, end: 20181105
  5. NITROFURANTOIN. [Suspect]
     Active Substance: NITROFURANTOIN
     Route: 065
     Dates: start: 20181112
  6. ALENDRONIC ACID [Concomitant]
     Active Substance: ALENDRONIC ACID
     Route: 065
     Dates: start: 20180823
  7. MIRABEGRON [Concomitant]
     Active Substance: MIRABEGRON
     Dosage: 1 DOSAGE FORMS DAILY;
     Route: 065
     Dates: start: 20180720

REACTIONS (2)
  - Tremor [Recovering/Resolving]
  - Syncope [Recovering/Resolving]

NARRATIVE: CASE EVENT DATE: 20181112
